FAERS Safety Report 5355394-X (Version None)
Quarter: 2007Q2

REPORT INFORMATION
  Report Type: 
  Country: None (occurrence: None)
  Receive Date: 20070525
  Receipt Date: 20070320
  Transmission Date: 20071010
  Serious: Yes (Hospitalization)
  Sender: FDA-Public Use
  Company Number: WAES 0703USA03902

PATIENT
  Age: 72 Year
  Sex: Male

DRUGS (2)
  1. VYTORIN [Suspect]
     Indication: BLOOD CHOLESTEROL INCREASED
     Dosage: 10-80 MG/DAILY/PO
     Route: 048
  2. LOPID [Concomitant]

REACTIONS (1)
  - RHABDOMYOLYSIS [None]
